FAERS Safety Report 20569014 (Version 1)
Quarter: 2022Q1

REPORT INFORMATION
  Report Type: Spontaneous
  Country: US (occurrence: US)
  Receive Date: 20220308
  Receipt Date: 20220308
  Transmission Date: 20220423
  Serious: No
  Sender: FDA-Public Use
  Company Number: US-KARYOPHARM-2022KPT000132

PATIENT

DRUGS (17)
  1. XPOVIO [Suspect]
     Active Substance: SELINEXOR
     Indication: Plasma cell myeloma
     Dosage: 100 MG, WEEKLY
     Route: 048
  2. VISTARIL [Concomitant]
     Active Substance: HYDROXYZINE PAMOATE
  3. TRAMADOL [Concomitant]
     Active Substance: TRAMADOL
  4. PANTOPRAZOLE [Concomitant]
     Active Substance: PANTOPRAZOLE
  5. ZOFRAN [Concomitant]
     Active Substance: ONDANSETRON HYDROCHLORIDE
  6. OLANZAPINE [Concomitant]
     Active Substance: OLANZAPINE
  7. BASAGLAR [Concomitant]
     Active Substance: INSULIN GLARGINE
  8. NOVOLOG [Concomitant]
     Active Substance: INSULIN ASPART
  9. HYDROCORTISONE [Concomitant]
     Active Substance: HYDROCORTISONE
  10. NEXPLANON [Concomitant]
     Active Substance: ETONOGESTREL
  11. DEXAMETHASONE [Concomitant]
     Active Substance: DEXAMETHASONE
  12. XGEVA [Concomitant]
     Active Substance: DENOSUMAB
  13. CYCLOBENZAPRINE [Concomitant]
     Active Substance: CYCLOBENZAPRINE
  14. CARVEDILOL [Concomitant]
     Active Substance: CARVEDILOL
  15. ATORVASTATIN [Concomitant]
     Active Substance: ATORVASTATIN
  16. AMOXICILLIN [Concomitant]
     Active Substance: AMOXICILLIN
  17. ACYCLOVIR [Concomitant]
     Active Substance: ACYCLOVIR

REACTIONS (1)
  - Muscular weakness [Recovering/Resolving]
